FAERS Safety Report 11810014 (Version 1)
Quarter: 2015Q4

REPORT INFORMATION
  Report Type: Spontaneous
  Country: US (occurrence: None)
  Receive Date: 20151207
  Receipt Date: 20151207
  Transmission Date: 20160305
  Serious: Yes (Hospitalization)
  Sender: FDA-Public Use
  Company Number: None

PATIENT
  Age: 59 Year
  Sex: Male

DRUGS (1)
  1. LOSARTAN 50MG [Suspect]
     Active Substance: LOSARTAN

REACTIONS (4)
  - Accidental overdose [None]
  - Wrong drug administered [None]
  - Blood potassium decreased [None]
  - Hypotension [None]

NARRATIVE: CASE EVENT DATE: 20151203
